FAERS Safety Report 6958117-3 (Version None)
Quarter: 2010Q3

REPORT INFORMATION
  Report Type: 
  Country: None (occurrence: None)
  Receive Date: 20100831
  Receipt Date: 20100823
  Transmission Date: 20110219
  Serious: Yes (Hospitalization)
  Sender: FDA-Public Use
  Company Number: US-ELI_LILLY_AND_COMPANY-US201007004084

PATIENT
  Sex: Male
  Weight: 97.7 kg

DRUGS (12)
  1. PRASUGREL HYDROCHLORIDE [Suspect]
     Indication: ACUTE CORONARY SYNDROME
     Dosage: 10 MG, DAILY (1/D)
     Dates: start: 20100617
  2. ASPIRIN [Concomitant]
     Indication: ACUTE CORONARY SYNDROME
     Dosage: 325 MG, UNK
     Dates: start: 20100616
  3. NEURONTIN [Concomitant]
     Indication: BACK PAIN
     Dosage: 400 MG, DAILY (1/D)
     Route: 048
  4. VICODIN [Concomitant]
     Indication: BACK PAIN
     Dosage: 1 U, 4/D
     Route: 048
  5. ROBAXIN [Concomitant]
     Indication: MUSCLE RELAXANT THERAPY
     Dosage: 750 MG, AS NEEDED
     Route: 048
     Dates: start: 20100616
  6. METOPROLOL TARTRATE [Concomitant]
     Indication: BLOOD PRESSURE
     Dosage: 25 MG, DAILY (1/D)
     Route: 048
     Dates: start: 20100616
  7. NITROGLYCERIN [Concomitant]
     Indication: ANGINA PECTORIS
     Dosage: 0.4 MG, AS NEEDED
     Route: 060
     Dates: start: 20100616
  8. SIMVASTATIN [Concomitant]
     Indication: BLOOD CHOLESTEROL
     Dosage: 20 MG, DAILY (1/D)
     Route: 048
     Dates: start: 20100618
  9. COREG [Concomitant]
     Indication: BLOOD PRESSURE
     Dosage: 3.13 MG, 2/D
     Route: 048
     Dates: start: 20100707
  10. LISINOPRIL [Concomitant]
     Indication: BLOOD PRESSURE
     Dosage: 2.5 MG, 2/D
     Route: 048
     Dates: start: 20100707
  11. DIGOXIN [Concomitant]
     Indication: ARRHYTHMIA
     Dosage: 0.13 MG, 2/D
     Route: 048
     Dates: start: 20100707
  12. IMDUR [Concomitant]
     Indication: ANGINA PECTORIS
     Dosage: 30 MG, DAILY (1/D)
     Route: 048
     Dates: start: 20100707

REACTIONS (2)
  - ANGINA PECTORIS [None]
  - CHEST PAIN [None]
